FAERS Safety Report 5123600-2 (Version None)
Quarter: 2006Q3

REPORT INFORMATION
  Report Type: 
  Country: None (occurrence: None)
  Receive Date: 20060908
  Receipt Date: 20051116
  Transmission Date: 20061208
  Serious: No
  Sender: FDA-Public Use
  Company Number: SMFE-6KVSWC

PATIENT

DRUGS (1)
  1. AVAGARD [Suspect]
     Indication: ANTIBIOTIC PROPHYLAXIS
     Dosage: 6 ML, AS NEEDED, 060
     Dates: start: 20040101, end: 20040501

REACTIONS (1)
  - EYE INFLAMMATION [None]
